FAERS Safety Report 4916946-1 (Version None)
Quarter: 2006Q1

REPORT INFORMATION
  Report Type: 
  Country: None (occurrence: None)
  Receive Date: 20060214
  Receipt Date: 20060201
  Transmission Date: 20060701
  Serious: Yes (Death, Other)
  Sender: FDA-Public Use
  Company Number: 2006011058

PATIENT
  Age: 83 Year
  Sex: Female

DRUGS (4)
  1. ZYVOX [Suspect]
     Indication: PNEUMONIA
     Dosage: 1200 MG (600 MG, 2 IN 1 D), INTRAVENOUS
     Route: 042
     Dates: start: 20060101, end: 20060113
  2. COLISTIN (COLISTIN) [Concomitant]
  3. MERONEM (MEROPENEM) [Concomitant]
  4. VANCOMYCIN [Concomitant]

REACTIONS (4)
  - OBSTRUCTIVE AIRWAYS DISORDER [None]
  - POST PROCEDURAL HAEMORRHAGE [None]
  - PROCEDURAL COMPLICATION [None]
  - THROMBOCYTOPENIA [None]
